FAERS Safety Report 20715128 (Version 2)
Quarter: 2022Q2

REPORT INFORMATION
  Report Type: Report from Study
  Country: PY (occurrence: PY)
  Receive Date: 20220415
  Receipt Date: 20220504
  Transmission Date: 20220721
  Serious: Yes (Other)
  Sender: FDA-Public Use
  Company Number: PY-TAKEDA-2022TUS024676

PATIENT
  Sex: Male

DRUGS (6)
  1. VELAGLUCERASE ALFA [Suspect]
     Active Substance: VELAGLUCERASE ALFA
     Indication: Gaucher^s disease
     Dosage: 60 INTERNATIONAL UNIT/KILOGRAM, Q2WEEKS
     Route: 065
     Dates: start: 20130121, end: 20150525
  2. VELAGLUCERASE ALFA [Suspect]
     Active Substance: VELAGLUCERASE ALFA
     Dosage: 45 INTERNATIONAL UNIT/KILOGRAM, Q2WEEKS
     Route: 065
     Dates: start: 20200120
  3. GLUCOSAMINE [Concomitant]
     Active Substance: GLUCOSAMINE
     Indication: Osteonecrosis
     Dosage: 1500 MILLIGRAM, QD
     Route: 048
     Dates: start: 20210101
  4. CALCIUM [Concomitant]
     Active Substance: CALCIUM
     Indication: Osteonecrosis
     Dosage: 500 MILLIGRAM, QD
     Route: 048
     Dates: start: 20210101
  5. VITAMIN D3 [Concomitant]
     Active Substance: CHOLECALCIFEROL
     Indication: Osteonecrosis
     Dosage: 400 INTERNATIONAL UNIT, QD
     Route: 048
     Dates: start: 20210101
  6. ALENDRONATE [Concomitant]
     Active Substance: ALENDRONATE SODIUM
     Indication: Osteonecrosis
     Dosage: 70 MILLIGRAM, 1/WEEK
     Route: 048
     Dates: start: 20210101

REACTIONS (1)
  - Osteonecrosis [Recovered/Resolved with Sequelae]

NARRATIVE: CASE EVENT DATE: 20201221
